FAERS Safety Report 16222561 (Version 1)
Quarter: 2019Q2

REPORT INFORMATION
  Report Type: Spontaneous
  Country: US (occurrence: US)
  Receive Date: 20190422
  Receipt Date: 20190422
  Transmission Date: 20190711
  Serious: No
  Sender: FDA-Public Use
  Company Number: US-MYLANLABS-2019M1030744

PATIENT
  Sex: Male
  Weight: 79.37 kg

DRUGS (1)
  1. DIAZEPAM TABLETS USP [Suspect]
     Active Substance: DIAZEPAM
     Indication: ANXIETY
     Dosage: 10 MILLIGRAM

REACTIONS (3)
  - Nausea [Unknown]
  - Constipation [Unknown]
  - Therapeutic product effect decreased [Unknown]
